FAERS Safety Report 21720074 (Version 5)
Quarter: 2023Q2

REPORT INFORMATION
  Report Type: Report from Study
  Country: US (occurrence: US)
  Receive Date: 20221213
  Receipt Date: 20230628
  Transmission Date: 20230721
  Serious: Yes (Other)
  Sender: FDA-Public Use
  Company Number: US-ABBVIE-4233032

PATIENT
  Sex: Female
  Weight: 101.15 kg

DRUGS (3)
  1. HUMIRA [Suspect]
     Active Substance: ADALIMUMAB
     Indication: Psoriasis
     Route: 058
  2. HUMIRA [Suspect]
     Active Substance: ADALIMUMAB
     Route: 058
     Dates: start: 20190518
  3. HUMIRA [Suspect]
     Active Substance: ADALIMUMAB
     Dates: start: 20160518

REACTIONS (7)
  - Cataract [Recovered/Resolved]
  - Impaired driving ability [Unknown]
  - Photopsia [Unknown]
  - Psoriasis [Not Recovered/Not Resolved]
  - Nasopharyngitis [Unknown]
  - Sinusitis [Unknown]
  - Stress [Unknown]

NARRATIVE: CASE EVENT DATE: 20080101
